FAERS Safety Report 11814080 (Version 1)
Quarter: 2015Q4

REPORT INFORMATION
  Report Type: Spontaneous
  Country: US (occurrence: None)
  Receive Date: 20151208
  Receipt Date: 20151208
  Transmission Date: 20160305
  Serious: Yes (Hospitalization)
  Sender: FDA-Public Use
  Company Number: None

PATIENT
  Age: 73 Year
  Sex: Male
  Weight: 142.7 kg

DRUGS (17)
  1. ASCORBIC ACID. [Concomitant]
     Active Substance: ASCORBIC ACID
  2. CA [Concomitant]
  3. KCL [Concomitant]
     Active Substance: POTASSIUM CHLORIDE
  4. ALDACTONE [Concomitant]
     Active Substance: SPIRONOLACTONE
  5. WELLBUTRIN [Concomitant]
     Active Substance: BUPROPION HYDROCHLORIDE
  6. COENZYME Q10 [Concomitant]
     Active Substance: UBIDECARENONE
  7. SYNTHROID [Concomitant]
     Active Substance: LEVOTHYROXINE SODIUM
  8. LIPITOR [Concomitant]
     Active Substance: ATORVASTATIN CALCIUM
  9. BUSPAR [Concomitant]
     Active Substance: BUSPIRONE HYDROCHLORIDE
  10. MVI [Concomitant]
     Active Substance: VITAMINS
  11. WAFARIN [Suspect]
     Active Substance: WARFARIN
     Indication: ATRIAL FIBRILLATION
     Dosage: 2.5MG MF PO
     Route: 048
  12. ASPIRN [Suspect]
     Active Substance: ASPIRIN
  13. BUMEX [Concomitant]
     Active Substance: BUMETANIDE
  14. WARFARIN [Suspect]
     Active Substance: WARFARIN
     Indication: ATRIAL FIBRILLATION
     Dosage: 5MG TWTHSS PO
     Route: 048
  15. COREG [Concomitant]
     Active Substance: CARVEDILOL
  16. OMEGA3 [Concomitant]
  17. ZOLOFT [Concomitant]
     Active Substance: SERTRALINE HYDROCHLORIDE

REACTIONS (7)
  - Haematochezia [None]
  - Anaemia [None]
  - Diverticulum intestinal haemorrhagic [None]
  - Gastric ulcer haemorrhage [None]
  - Large intestine perforation [None]
  - Abdominal abscess [None]
  - Coagulopathy [None]

NARRATIVE: CASE EVENT DATE: 20150314
